FAERS Safety Report 25457814 (Version 3)
Quarter: 2025Q3

REPORT INFORMATION
  Report Type: Report from Study
  Country: EU (occurrence: EU)
  Receive Date: 20250619
  Receipt Date: 20250729
  Transmission Date: 20251021
  Serious: Yes (Death, Hospitalization, Other)
  Sender: ABBVIE
  Company Number: EU-ABBVIE-6331474

PATIENT
  Age: 73 Year
  Sex: Male

DRUGS (8)
  1. FOSCARBIDOPA\FOSLEVODOPA [Suspect]
     Active Substance: FOSCARBIDOPA\FOSLEVODOPA
     Indication: Parkinson^s disease
     Route: 058
     Dates: start: 20250602
  2. FOSCARBIDOPA\FOSLEVODOPA [Suspect]
     Active Substance: FOSCARBIDOPA\FOSLEVODOPA
     Route: 058
     Dates: start: 20250611, end: 20250612
  3. NEBIVOLOL [Concomitant]
     Active Substance: NEBIVOLOL
     Indication: Hypertension
     Dosage: FORM STRENGTH: 5 MG
     Route: 048
  4. Saxotin [Concomitant]
     Indication: Diabetes mellitus
     Dosage: FORM STRENGTH: 50 MILLIGRAM
     Route: 048
  5. NEXIUM [Concomitant]
     Active Substance: ESOMEPRAZOLE MAGNESIUM
     Indication: Prophylaxis
     Dosage: FORM STRENGTH: 40 MILLIGRAM
     Route: 048
  6. AMANTADINE SULFATE [Concomitant]
     Active Substance: AMANTADINE SULFATE
     Indication: Parkinson^s disease
     Dosage: FORM STRENGTH: 100 MG
     Route: 048
  7. Scippa [Concomitant]
     Indication: Anxiety
     Dosage: FORM STRENGTH: 10 MG
     Route: 048
     Dates: start: 20250606
  8. IRBESARTAN [Concomitant]
     Active Substance: IRBESARTAN
     Indication: Hypertension
     Dosage: 600 MILLIGRAM?FORM STRENGTH: 300 MILLIGRAM
     Route: 048

REACTIONS (16)
  - Sepsis [Fatal]
  - Pyrexia [Recovered/Resolved]
  - Renal failure [Fatal]
  - Respiratory disorder [Unknown]
  - Infection [Unknown]
  - Pneumonia [Unknown]
  - Muscle spasms [Not Recovered/Not Resolved]
  - Somnolence [Not Recovered/Not Resolved]
  - Dehydration [Recovered/Resolved]
  - Tremor [Recovering/Resolving]
  - Fluid intake reduced [Unknown]
  - Muscle rigidity [Recovering/Resolving]
  - Pyrexia [Unknown]
  - Clostridium difficile infection [Unknown]
  - Blood sodium increased [Unknown]
  - Renal impairment [Recovering/Resolving]

NARRATIVE: CASE EVENT DATE: 20250101
